FAERS Safety Report 7124603-9 (Version None)
Quarter: 2010Q4

REPORT INFORMATION
  Report Type: 
  Country: None (occurrence: None)
  Receive Date: 20101122
  Receipt Date: 20101122
  Transmission Date: 20110411
  Serious: Yes (Hospitalization, Other)
  Sender: FDA-Public Use
  Company Number: None

PATIENT
  Age: 55 Year
  Sex: Female
  Weight: 95.2554 kg

DRUGS (1)
  1. BUPROPION XL 150 MG ACTAVIS [Suspect]
     Indication: DEPRESSION
     Dosage: 150MG 1/DAY PO
     Route: 048
     Dates: start: 20101101, end: 20101121

REACTIONS (2)
  - TRANSIENT GLOBAL AMNESIA [None]
  - UTERINE SPASM [None]
